FAERS Safety Report 17604138 (Version 1)
Quarter: 2020Q1

REPORT INFORMATION
  Report Type: Spontaneous
  Country: ES (occurrence: ES)
  Receive Date: 20200331
  Receipt Date: 20200331
  Transmission Date: 20200409
  Serious: Yes (Hospitalization)
  Sender: FDA-Public Use
  Company Number: ES-MYLANLABS-2020M1032469

PATIENT
  Age: 79 Year
  Sex: Female

DRUGS (10)
  1. DEXKETOPROFEN TROMETAMOL [Interacting]
     Active Substance: DEXKETOPROFEN TROMETAMOL
     Indication: BACK PAIN
     Dosage: 25 MILLIGRAM, BID(25MG CADA 12H)
     Route: 048
     Dates: start: 20200216, end: 20200219
  2. DICLOFENACO RETARD [Interacting]
     Active Substance: DICLOFENAC SODIUM
     Indication: BACK PAIN
     Dosage: 75 MILLIGRAM, BID(75MG CADA 12H)
     Route: 048
     Dates: start: 20200219, end: 20200225
  3. IBUPROFENO [Concomitant]
     Active Substance: IBUPROFEN
     Indication: BACK PAIN
     Dosage: 600 MILLIGRAM, BID
     Route: 048
     Dates: start: 20200214, end: 20200216
  4. LANACORDIN PEDIATRICO [Concomitant]
     Indication: ATRIAL FIBRILLATION
     Dosage: UNK(3 AL DIA)
     Dates: start: 20170222, end: 20200226
  5. METAMIZOL                          /06276701/ [Concomitant]
     Active Substance: METAMIZOLE
     Indication: BACK PAIN
     Dosage: 575 MILLIGRAM, Q6H
     Route: 048
     Dates: start: 20200219
  6. BISOPROLOL [Concomitant]
     Active Substance: BISOPROLOL
     Dosage: 5 MILLIGRAM, BID
     Route: 048
     Dates: start: 20171107, end: 20200226
  7. ENALAPRIL/HYDROCHLOROTHIAZIDE [Interacting]
     Active Substance: ENALAPRIL MALEATE\HYDROCHLOROTHIAZIDE
     Indication: HYPERTENSION
     Dosage: 1 DOSAGE FORM, QD(1 DIA)
     Route: 048
     Dates: start: 20130304, end: 20200227
  8. FUROSEMIDE. [Suspect]
     Active Substance: FUROSEMIDE
     Indication: PRODUCT USED FOR UNKNOWN INDICATION
     Dosage: 40 MILLIGRAM, QD
     Route: 048
     Dates: start: 20170105
  9. ZALDIAR [Concomitant]
     Active Substance: ACETAMINOPHEN\TRAMADOL HYDROCHLORIDE
     Indication: BACK PAIN
     Dosage: 1 DOSAGE FORM, Q8H
     Route: 048
     Dates: start: 20200219, end: 20200229
  10. SINTROM [Concomitant]
     Active Substance: ACENOCOUMAROL
     Indication: ATRIAL FIBRILLATION
     Dosage: 6 MILLIGRAM, QW
     Route: 048
     Dates: start: 20180725

REACTIONS (3)
  - Acute kidney injury [Recovering/Resolving]
  - Drug interaction [Unknown]
  - Toxicity to various agents [Recovering/Resolving]

NARRATIVE: CASE EVENT DATE: 20200226
